FAERS Safety Report 9185917 (Version 1)
Quarter: 2013Q1

REPORT INFORMATION
  Report Type: Spontaneous
  Country: US (occurrence: None)
  Receive Date: 20120628
  Receipt Date: 20120628
  Transmission Date: 20140127
  Serious: Yes (Other)
  Sender: FDA-Public Use
  Company Number: PHHY2011US35861

PATIENT
  Sex: Female

DRUGS (16)
  1. RECLAST [Suspect]
     Indication: OSTEOPENIA
     Dates: start: 20110415
  2. PREDNISONE (PREDNISONE) [Concomitant]
  3. LORATIDINE (LORATIDINE) [Concomitant]
  4. METFORMIN (METFORMIN) [Concomitant]
  5. LIPITOR (ATORVASTATIN CALCIUM) [Concomitant]
  6. SPIRIVA ( TIOTROPIUM BROMIDE) [Concomitant]
  7. ADVAIR (FLUTICASONE PROPIONATE, SALMETROOL XINAFOATE) [Concomitant]
  8. ALBUTEROL (SALMBUTAMOL) [Concomitant]
  9. BUPROPION HYDROCHLORIDE (BUPROPION HYDROCHLORIDE) (BUPROPION HYDROCHLORIDE) [Concomitant]
  10. CALCIUM (CALCIUM) [Concomitant]
  11. CEFTIN (CERFURXIME AXETIL) [Concomitant]
  12. CINNAMON (CINNAMOMUM VERUM) [Concomitant]
  13. CRANBERRY [Concomitant]
  14. HYDROXYZINE HYDROCHLORIDE (HYDROXYZINE HYDRCHLORIDE) [Concomitant]
  15. MUCINEX (GUAFIFENESIN) [Concomitant]
  16. MULTIVITAMINS (ASCORBIC ACID, ERGOCALIFEROL, FOLIC ACID, NICTONIMIDE, PANTHENOL, RETINOL, RIBOFLAVIN, THIAMINE HYDROCHLORIDE) [Concomitant]

REACTIONS (17)
  - Arthralgia [None]
  - Hypophagia [None]
  - Feeling abnormal [None]
  - Local swelling [None]
  - Blood glucose increased [None]
  - White blood cell count increased [None]
  - Platelet count increased [None]
  - Influenza like illness [None]
  - Joint warmth [None]
  - Feeling of body temperature change [None]
  - Nausea [None]
  - Neck pain [None]
  - Joint swelling [None]
  - Musculoskeletal stiffness [None]
  - Myalgia [None]
  - Headache [None]
  - Back pain [None]
